FAERS Safety Report 4948457-1 (Version None)
Quarter: 2006Q1

REPORT INFORMATION
  Report Type: 
  Country: None (occurrence: None)
  Receive Date: 20060201
  Receipt Date: 20051102
  Transmission Date: 20060701
  Serious: No
  Sender: FDA-Public Use
  Company Number: 2005PV004226

PATIENT
  Age: 65 Year
  Sex: Male
  Weight: 127.0072 kg

DRUGS (4)
  1. BYETTA [Suspect]
     Indication: DIABETES MELLITUS NON-INSULIN-DEPENDENT
     Dosage: 10 MCG;BID;SC ; 5 MCG;BID;SC
     Route: 058
     Dates: start: 20050601, end: 20050701
  2. BYETTA [Suspect]
     Indication: DIABETES MELLITUS NON-INSULIN-DEPENDENT
     Dosage: 10 MCG;BID;SC ; 5 MCG;BID;SC
     Route: 058
     Dates: start: 20050701
  3. METFORMIN [Suspect]
     Indication: DIABETES MELLITUS NON-INSULIN-DEPENDENT
     Dosage: 800 MG;QAM;PO ; 800 MG;BID;PO
     Route: 048
     Dates: start: 20050101, end: 20051001
  4. METFORMIN [Suspect]
     Indication: DIABETES MELLITUS NON-INSULIN-DEPENDENT
     Dosage: 800 MG;QAM;PO ; 800 MG;BID;PO
     Route: 048
     Dates: start: 20050101

REACTIONS (2)
  - CONSTIPATION [None]
  - DIARRHOEA [None]
